FAERS Safety Report 18112234 (Version 3)
Quarter: 2020Q4

REPORT INFORMATION
  Report Type: Report from Study
  Country: US (occurrence: US)
  Receive Date: 20200805
  Receipt Date: 20201001
  Transmission Date: 20210113
  Serious: Yes (Hospitalization)
  Sender: FDA-Public Use
  Company Number: US-ROCHE-2652248

PATIENT
  Age: 60 Year
  Sex: Male
  Weight: 70.6 kg

DRUGS (33)
  1. POLATUZUMAB VEDOTIN. [Suspect]
     Active Substance: POLATUZUMAB VEDOTIN
     Indication: B-CELL LYMPHOMA
     Dosage: ON 21/JUL/2020, HE RECEIVED MOST RECENT DOSE (139 MG) OF POLATUZUMAB VEDOTIN
     Route: 042
     Dates: start: 20200211
  2. RANITIDINE. [Concomitant]
     Active Substance: RANITIDINE
     Route: 048
     Dates: start: 2016
  3. ONDANSETRON [Concomitant]
     Active Substance: ONDANSETRON
     Route: 048
     Dates: start: 20200721, end: 20200721
  4. FOSAPREPITANT [Concomitant]
     Active Substance: FOSAPREPITANT
     Route: 042
     Dates: start: 20200721, end: 20200721
  5. DEXAMETHASONE. [Concomitant]
     Active Substance: DEXAMETHASONE
     Route: 048
     Dates: start: 20200721, end: 20200721
  6. LOPERAMIDE [Concomitant]
     Active Substance: LOPERAMIDE
     Route: 048
     Dates: start: 20200731, end: 20200731
  7. CODEINE GUAIFENESIN [Concomitant]
     Active Substance: CODEINE PHOSPHATE\GUAIFENESIN
     Route: 048
     Dates: start: 20200524
  8. DOXORUBICIN [Suspect]
     Active Substance: DOXORUBICIN
     Indication: B-CELL LYMPHOMA
     Dosage: ON 21/JUL/2020, HE RECEIVED MOST RECENT DOSE (72 MG) OF DOXORUBICIN.
     Route: 042
     Dates: start: 20200211
  9. REMDESIVIR. [Concomitant]
     Active Substance: REMDESIVIR
     Route: 042
     Dates: start: 20200528
  10. CYCLOPHOSPHAMIDE. [Suspect]
     Active Substance: CYCLOPHOSPHAMIDE
     Indication: B-CELL LYMPHOMA
     Dosage: ON 21/JUL/2020, HE RECEIVED MOST RECENT DOSE (1000 MG) OF CYCLOPHOSPHAMIDE.
     Route: 042
     Dates: start: 20200211
  11. ACYCLOVIR. [Concomitant]
     Active Substance: ACYCLOVIR
     Route: 048
     Dates: start: 2015
  12. ONDANSETRON [Concomitant]
     Active Substance: ONDANSETRON
     Route: 048
     Dates: start: 20200811, end: 20200811
  13. MOSUNETUZUMAB. [Suspect]
     Active Substance: MOSUNETUZUMAB
     Indication: B-CELL LYMPHOMA
     Dosage: ON 21/JUL/2020, HE RECEIVED MOST RECENT DOSE (30 MG) OF MOSUNETUZUMAB PRIOR TO EVENT ONSET.
     Route: 042
     Dates: start: 20200212
  14. PREDNISONE. [Suspect]
     Active Substance: PREDNISONE
     Indication: B-CELL LYMPHOMA
     Dosage: ON 21/JUL/2020, HE RECEIVED MOST RECENT DOSE (100 MG) OF PREDNISONE.?DATE OF MOST RECENT DOSE OF STU
     Route: 048
     Dates: start: 20200211
  15. ACETAMINOPHEN. [Concomitant]
     Active Substance: ACETAMINOPHEN
     Route: 048
     Dates: start: 1976
  16. CETIRIZINE [Concomitant]
     Active Substance: CETIRIZINE HYDROCHLORIDE
     Route: 048
     Dates: start: 20200222
  17. FOSAPREPITANT [Concomitant]
     Active Substance: FOSAPREPITANT
     Route: 042
     Dates: start: 20200811, end: 20200811
  18. BACTRIM [Concomitant]
     Active Substance: SULFAMETHOXAZOLE\TRIMETHOPRIM
     Route: 048
     Dates: start: 201911
  19. LOPERAMIDE [Concomitant]
     Active Substance: LOPERAMIDE
     Route: 048
     Dates: start: 20200801
  20. ACETAMINOPHEN. [Concomitant]
     Active Substance: ACETAMINOPHEN
     Route: 048
     Dates: start: 20200212
  21. CALCIUM CARBONATE. [Concomitant]
     Active Substance: CALCIUM CARBONATE
     Route: 048
     Dates: start: 2000
  22. PAROXETINE. [Concomitant]
     Active Substance: PAROXETINE
     Route: 048
     Dates: start: 20200522
  23. PEGFILGRASTIM [Concomitant]
     Active Substance: PEGFILGRASTIM
     Route: 058
     Dates: start: 20200721, end: 20200721
  24. MAGNESIUM SULFATE. [Concomitant]
     Active Substance: MAGNESIUM SULFATE
     Route: 042
     Dates: start: 20200729, end: 20200729
  25. MIRTAZAPINE. [Concomitant]
     Active Substance: MIRTAZAPINE
     Route: 048
     Dates: start: 201910
  26. ALLOPURINOL. [Concomitant]
     Active Substance: ALLOPURINOL
     Route: 048
     Dates: start: 20191001
  27. ONDANSETRON [Concomitant]
     Active Substance: ONDANSETRON
     Route: 048
     Dates: start: 20200211
  28. TRIAMCINOLONE [Concomitant]
     Active Substance: TRIAMCINOLONE
     Dosage: UNKNOWN
     Route: 061
     Dates: start: 20200210
  29. PEGFILGRASTIM [Concomitant]
     Active Substance: PEGFILGRASTIM
     Route: 058
     Dates: start: 20200811, end: 20200811
  30. LORAZEPAM. [Concomitant]
     Active Substance: LORAZEPAM
     Route: 048
     Dates: start: 20200721, end: 20200721
  31. MEDICAL MARIJUANA [Concomitant]
     Active Substance: CANNABIS SATIVA SUBSP. INDICA TOP
     Dosage: UNKNOWN
     Route: 048
     Dates: start: 2016
  32. ATORVASTATIN [Concomitant]
     Active Substance: ATORVASTATIN
     Route: 048
     Dates: start: 20200521
  33. DEXAMETHASONE. [Concomitant]
     Active Substance: DEXAMETHASONE
     Route: 048
     Dates: start: 20200811, end: 20200811

REACTIONS (2)
  - Thrombocytopenia [Recovered/Resolved]
  - Lower gastrointestinal haemorrhage [Recovered/Resolved]

NARRATIVE: CASE EVENT DATE: 20200721
